FAERS Safety Report 21380079 (Version 1)
Quarter: 2022Q3

REPORT INFORMATION
  Report Type: Spontaneous
  Country: AU (occurrence: AU)
  Receive Date: 20220927
  Receipt Date: 20220927
  Transmission Date: 20221027
  Serious: Yes (Hospitalization, Other)
  Sender: FDA-Public Use
  Company Number: AU-SA-2022SA389090

PATIENT
  Age: 19 Year
  Sex: Male

DRUGS (1)
  1. DUPILUMAB [Suspect]
     Active Substance: DUPILUMAB
     Indication: Eczema
     Dosage: UNK

REACTIONS (16)
  - Salmonellosis [Recovered/Resolved]
  - Pyrexia [Recovered/Resolved]
  - Lethargy [Recovered/Resolved]
  - Chills [Recovered/Resolved]
  - Nausea [Recovered/Resolved]
  - Vomiting [Recovered/Resolved]
  - Septic shock [Recovered/Resolved]
  - Hypotension [Recovered/Resolved]
  - Sinus tachycardia [Recovered/Resolved]
  - Tachypnoea [Recovered/Resolved]
  - Leukocytosis [Recovered/Resolved]
  - Sepsis [Recovered/Resolved]
  - Neutrophilia [Recovered/Resolved]
  - Renal abscess [Recovered/Resolved]
  - Flank pain [Recovered/Resolved]
  - Pollakiuria [Recovered/Resolved]
